FAERS Safety Report 9278283 (Version 1)
Quarter: 2013Q2

REPORT INFORMATION
  Report Type: Spontaneous
  Country: JP (occurrence: JP)
  Receive Date: 20130508
  Receipt Date: 20130508
  Transmission Date: 20140414
  Serious: Yes (Other)
  Sender: FDA-Public Use
  Company Number: JP-BAYER-2013-057068

PATIENT
  Age: 53 Year
  Sex: Female

DRUGS (4)
  1. SORAFENIB (RAF KINASE INHIBITOR) [Suspect]
     Indication: OVARIAN CLEAR CELL CARCINOMA
  2. BEVACIZUMAB [Concomitant]
     Indication: OVARIAN CLEAR CELL CARCINOMA
  3. OXALIPLATIN [Concomitant]
     Indication: OVARIAN CLEAR CELL CARCINOMA
  4. GEMCITABINE [Concomitant]
     Indication: OVARIAN CLEAR CELL CARCINOMA

REACTIONS (4)
  - Palmar-plantar erythrodysaesthesia syndrome [None]
  - Trousseau^s syndrome [None]
  - Ischaemic stroke [None]
  - Off label use [None]
